FAERS Safety Report 11349958 (Version 1)
Quarter: 2015Q3

REPORT INFORMATION
  Report Type: Report from Study
  Country: US (occurrence: US)
  Receive Date: 20150807
  Receipt Date: 20150807
  Transmission Date: 20151125
  Serious: Yes (Other)
  Sender: FDA-Public Use
  Company Number: US-BIOGENIDEC-2015BI109610

PATIENT
  Age: 32 Year
  Sex: Female

DRUGS (1)
  1. AVONEX [Suspect]
     Active Substance: INTERFERON BETA-1A
     Indication: MULTIPLE SCLEROSIS
     Route: 030
     Dates: start: 20150629

REACTIONS (4)
  - Fracture pain [Unknown]
  - Influenza like illness [Recovered/Resolved]
  - Skull fracture [Unknown]
  - Head injury [Unknown]

NARRATIVE: CASE EVENT DATE: 201507
